FAERS Safety Report 8470519 (Version 2)
Quarter: 2013Q2

REPORT INFORMATION
  Report Type: Spontaneous
  Country: US (occurrence: US)
  Receive Date: 20120321
  Receipt Date: 20130510
  Transmission Date: 20140414
  Serious: Yes (Other)
  Sender: FDA-Public Use
  Company Number: US-ROCHE-784592

PATIENT
  Age: 19 Year
  Sex: Male
  Weight: 124.85 kg

DRUGS (1)
  1. ACCUTANE [Suspect]
     Indication: ACNE
     Dosage: HE RECEIVED TREATMENT WITH ISOTRETINOIN AT A DOSE OF 10 MG EVERY DAY AND 40 MG TWICE A DAY
     Route: 065
     Dates: start: 199908, end: 200007

REACTIONS (6)
  - Colitis ulcerative [Unknown]
  - Inflammatory bowel disease [Unknown]
  - Haemorrhoids [Unknown]
  - Colitis [Unknown]
  - Stress [Unknown]
  - Dry skin [Recovering/Resolving]
